FAERS Safety Report 7506801-5 (Version None)
Quarter: 2011Q2

REPORT INFORMATION
  Report Type: 
  Country: None (occurrence: None)
  Receive Date: 20110526
  Receipt Date: 20110523
  Transmission Date: 20111010
  Serious: Yes (Hospitalization)
  Sender: FDA-Public Use
  Company Number: A0912333A

PATIENT
  Age: 56 Year
  Sex: Male

DRUGS (1)
  1. AVANDIA [Suspect]
     Dosage: 4MG TWICE PER DAY
     Route: 048
     Dates: start: 20051001, end: 20070901

REACTIONS (4)
  - DEPRESSION [None]
  - MYOCARDIAL ISCHAEMIA [None]
  - RENAL FAILURE CHRONIC [None]
  - MYOCARDIAL INFARCTION [None]
